FAERS Safety Report 21642297 (Version 4)
Quarter: 2023Q1

REPORT INFORMATION
  Report Type: Report from Study
  Country: US (occurrence: US)
  Receive Date: 20221125
  Receipt Date: 20230323
  Transmission Date: 20230417
  Serious: No
  Sender: FDA-Public Use
  Company Number: US-002147023-NVSC2022US265572

PATIENT
  Sex: Male

DRUGS (2)
  1. TASIGNA [Suspect]
     Active Substance: NILOTINIB
     Indication: Product used for unknown indication
     Dosage: 200 MG, BID (TWICE A DAY)
     Route: 048
  2. TASIGNA [Suspect]
     Active Substance: NILOTINIB
     Dosage: 200 MG, Q12H (TAKE 2 CAPSULES BY MOUTH EVERY 12 HOURS)
     Route: 048

REACTIONS (3)
  - Dysarthria [Unknown]
  - Product dose omission issue [Unknown]
  - Product quality issue [Unknown]
